FAERS Safety Report 7727533-4 (Version None)
Quarter: 2011Q3

REPORT INFORMATION
  Report Type: 
  Country: None (occurrence: None)
  Receive Date: 20110902
  Receipt Date: 20110831
  Transmission Date: 20111222
  Serious: Yes (Other)
  Sender: FDA-Public Use
  Company Number: US-PFIZER INC-2011204407

PATIENT
  Age: 56 Year
  Sex: Male

DRUGS (2)
  1. XANAX [Suspect]
     Indication: ANXIETY
     Dosage: 2 MG, EVERY 8 HOURS
     Route: 048
  2. XANAX [Suspect]
     Dosage: 2 MG, EVERY 8 HOURS
     Route: 048
     Dates: start: 20110829

REACTIONS (2)
  - MALAISE [None]
  - HYPERTENSION [None]
